FAERS Safety Report 10418320 (Version 2)
Quarter: 2014Q3

REPORT INFORMATION
  Report Type: Report from Study
  Country: JP (occurrence: JP)
  Receive Date: 20140829
  Receipt Date: 20140829
  Transmission Date: 20150326
  Serious: Yes (Other)
  Sender: FDA-Public Use
  Company Number: JP-009507513-1407JPN005656

PATIENT
  Age: 64 Year
  Sex: Male

DRUGS (45)
  1. CISPLATIN. [Suspect]
     Active Substance: CISPLATIN
     Indication: NON-SMALL CELL LUNG CANCER
     Dosage: 140 MG, QD
     Route: 042
     Dates: start: 20140225, end: 20140225
  2. DECADRON (DEXAMETHASONE SODIUM PHOSPHATE) [Concomitant]
     Active Substance: DEXAMETHASONE SODIUM PHOSPHATE
     Dosage: 8.25 MG, QD
     Dates: start: 20140225, end: 20140225
  3. AMOBAN [Concomitant]
     Active Substance: ZOPICLONE
     Dosage: UNK
     Dates: start: 20140425, end: 20140425
  4. MANNITOL. [Concomitant]
     Active Substance: MANNITOL
     Dosage: UNK
     Dates: start: 20140225, end: 20140225
  5. FOSAPREPITANT DIMEGLUMINE [Suspect]
     Active Substance: FOSAPREPITANT DIMEGLUMINE
     Indication: PROPHYLAXIS OF NAUSEA AND VOMITING
     Dosage: 150 MG, QD
     Route: 041
     Dates: start: 20140225, end: 20140225
  6. FOSAPREPITANT DIMEGLUMINE [Suspect]
     Active Substance: FOSAPREPITANT DIMEGLUMINE
     Dosage: 150 MG, QD
     Route: 041
     Dates: start: 20140325, end: 20140325
  7. PRIMPERAN [Concomitant]
     Active Substance: METOCLOPRAMIDE HYDROCHLORIDE
     Dosage: 20 MG, QD
     Dates: start: 20140326, end: 20140327
  8. PRIMPERAN [Concomitant]
     Active Substance: METOCLOPRAMIDE HYDROCHLORIDE
     Dosage: 20 MG, QD
     Dates: start: 20140424, end: 20140425
  9. MAGNESIUM SULFATE [Concomitant]
     Active Substance: MAGNESIUM SULFATE
     Dosage: UNK
     Dates: start: 20140423, end: 20140423
  10. CISPLATIN. [Suspect]
     Active Substance: CISPLATIN
     Dosage: 140 MG, QD
     Route: 042
     Dates: start: 20140325, end: 20140325
  11. CISPLATIN. [Suspect]
     Active Substance: CISPLATIN
     Dosage: 140 MG, QD
     Route: 042
     Dates: start: 20140423, end: 20140423
  12. ALOXI [Concomitant]
     Active Substance: PALONOSETRON HYDROCHLORIDE
     Dosage: 0.75 MG, QD
     Dates: start: 20140521, end: 20140521
  13. DECADRON (DEXAMETHASONE SODIUM PHOSPHATE) [Concomitant]
     Active Substance: DEXAMETHASONE SODIUM PHOSPHATE
     Dosage: 8.25 MG, QD
     Dates: start: 20140325, end: 20140325
  14. DECADRON (DEXAMETHASONE SODIUM PHOSPHATE) [Concomitant]
     Active Substance: DEXAMETHASONE SODIUM PHOSPHATE
     Dosage: 4.95 MG, QD
     Dates: start: 20140522, end: 20140523
  15. PRIMPERAN [Concomitant]
     Active Substance: METOCLOPRAMIDE HYDROCHLORIDE
     Dosage: 25 MG, QD
     Dates: start: 20140226, end: 20140227
  16. PRIMPERAN [Concomitant]
     Active Substance: METOCLOPRAMIDE HYDROCHLORIDE
     Dosage: 20 MG, QD
     Dates: start: 20140522, end: 20140523
  17. MAGNESIUM SULFATE [Concomitant]
     Active Substance: MAGNESIUM SULFATE
     Dosage: UNK
     Dates: start: 20140325, end: 20140325
  18. MANNITOL. [Concomitant]
     Active Substance: MANNITOL
     Dosage: UNK
     Dates: start: 20140423, end: 20140423
  19. FOSAPREPITANT DIMEGLUMINE [Suspect]
     Active Substance: FOSAPREPITANT DIMEGLUMINE
     Dosage: 150 MG, QD
     Route: 041
     Dates: start: 20140423, end: 20140423
  20. NAVELBINE [Suspect]
     Active Substance: VINORELBINE TARTRATE
     Dosage: UNK
     Route: 042
     Dates: start: 20140304, end: 20140304
  21. DECADRON (DEXAMETHASONE SODIUM PHOSPHATE) [Concomitant]
     Active Substance: DEXAMETHASONE SODIUM PHOSPHATE
     Dosage: 8.25 MG, QD
     Dates: start: 20140423, end: 20140423
  22. MANNITOL. [Concomitant]
     Active Substance: MANNITOL
     Dosage: UNK
     Dates: start: 20140325, end: 20140325
  23. AMOBAN [Concomitant]
     Active Substance: ZOPICLONE
     Dosage: UNK
     Dates: start: 20140522, end: 20140524
  24. AMOBAN [Concomitant]
     Active Substance: ZOPICLONE
     Dosage: UNK
     Dates: start: 20140521, end: 20140521
  25. PURSENNID (SENNOSIDES) [Concomitant]
     Dosage: 12 MG, ONCE
     Dates: start: 20140425, end: 20140425
  26. NAVELBINE [Suspect]
     Active Substance: VINORELBINE TARTRATE
     Indication: NON-SMALL CELL LUNG CANCER
     Dosage: 44 MG, QD
     Route: 042
     Dates: start: 20140225, end: 20140225
  27. NAVELBINE [Suspect]
     Active Substance: VINORELBINE TARTRATE
     Dosage: 44 MG, QD
     Route: 042
     Dates: start: 20140325, end: 20140325
  28. NAVELBINE [Suspect]
     Active Substance: VINORELBINE TARTRATE
     Dosage: 44 MG, QD
     Route: 042
     Dates: start: 20140423, end: 20140423
  29. ALOXI [Concomitant]
     Active Substance: PALONOSETRON HYDROCHLORIDE
     Dosage: 0.75 MG, QD
     Dates: start: 20140325, end: 20140325
  30. ALOXI [Concomitant]
     Active Substance: PALONOSETRON HYDROCHLORIDE
     Dosage: 0.75 MG, QD
     Dates: start: 20140423, end: 20140423
  31. DECADRON (DEXAMETHASONE SODIUM PHOSPHATE) [Concomitant]
     Active Substance: DEXAMETHASONE SODIUM PHOSPHATE
     Dosage: 8.25 MG, QD
     Dates: start: 20140521, end: 20140521
  32. DECADRON (DEXAMETHASONE SODIUM PHOSPHATE) [Concomitant]
     Active Substance: DEXAMETHASONE SODIUM PHOSPHATE
     Dosage: 4.95 MG, QD
     Dates: start: 20140424, end: 20140425
  33. MAGNESIUM SULFATE [Concomitant]
     Active Substance: MAGNESIUM SULFATE
     Dosage: UNK
     Dates: start: 20140225, end: 20140225
  34. PRIMPERAN [Concomitant]
     Active Substance: METOCLOPRAMIDE HYDROCHLORIDE
     Dosage: UNK
     Dates: start: 20140326, end: 20140327
  35. AMOBAN [Concomitant]
     Active Substance: ZOPICLONE
     Dosage: UNK
     Dates: start: 20140327, end: 20140328
  36. DECADRON (DEXAMETHASONE SODIUM PHOSPHATE) [Concomitant]
     Active Substance: DEXAMETHASONE SODIUM PHOSPHATE
     Dosage: 4.95 MG, QD
     Dates: start: 20140226, end: 20140227
  37. FOSAPREPITANT DIMEGLUMINE [Suspect]
     Active Substance: FOSAPREPITANT DIMEGLUMINE
     Dosage: 150 MG, QD
     Route: 041
     Dates: start: 20140521, end: 20140521
  38. CISPLATIN. [Suspect]
     Active Substance: CISPLATIN
     Dosage: 140 MG, QD
     Route: 042
     Dates: start: 20140521, end: 20140521
  39. NAVELBINE [Suspect]
     Active Substance: VINORELBINE TARTRATE
     Dosage: 44 MG, QD
     Route: 042
     Dates: start: 20140521, end: 20140521
  40. ALOXI [Concomitant]
     Active Substance: PALONOSETRON HYDROCHLORIDE
     Dosage: 0.75 MG, QD
     Dates: start: 20140225, end: 20140225
  41. DECADRON (DEXAMETHASONE SODIUM PHOSPHATE) [Concomitant]
     Active Substance: DEXAMETHASONE SODIUM PHOSPHATE
     Dosage: 4.95 MG, QD
     Dates: start: 20140326, end: 20140327
  42. MAGNESIUM SULFATE [Concomitant]
     Active Substance: MAGNESIUM SULFATE
     Dosage: UNK
     Dates: start: 20140521, end: 20140521
  43. MANNITOL. [Concomitant]
     Active Substance: MANNITOL
     Dosage: UNK
     Dates: start: 20140521, end: 20140521
  44. PRIMPERAN [Concomitant]
     Active Substance: METOCLOPRAMIDE HYDROCHLORIDE
     Dosage: UNK
     Dates: start: 20140226, end: 20140227
  45. DERMOVATE [Concomitant]
     Active Substance: CLOBETASOL
     Dosage: UNK
     Dates: start: 20140521, end: 20140605

REACTIONS (13)
  - Anaemia [Unknown]
  - Injection site swelling [Recovered/Resolved]
  - Injection site induration [Recovered/Resolved]
  - Injection site vesicles [Recovered/Resolved]
  - Malaise [Recovered/Resolved]
  - Decreased appetite [Recovered/Resolved]
  - Hiccups [Recovered/Resolved]
  - Injection site phlebitis [Recovered/Resolved]
  - White blood cell count decreased [Recovered/Resolved]
  - Injection site pain [Recovered/Resolved]
  - Injection site erythema [Recovered/Resolved]
  - Blood bilirubin increased [Recovered/Resolved]
  - Agranulocytosis [Recovered/Resolved]

NARRATIVE: CASE EVENT DATE: 20140226
